FAERS Safety Report 6321601-X (Version None)
Quarter: 2009Q3

REPORT INFORMATION
  Report Type: 
  Country: None (occurrence: None)
  Receive Date: 20090819
  Receipt Date: 20090807
  Transmission Date: 20100115
  Serious: Yes (Other)
  Sender: FDA-Public Use
  Company Number: 2009-03214

PATIENT
  Age: 71 Year
  Sex: Male
  Weight: 87 kg

DRUGS (8)
  1. VELCADE [Suspect]
     Indication: MULTIPLE MYELOMA
     Dosage: 2.6 MG, INTRAVENOUS
     Route: 042
     Dates: start: 20070807, end: 20090526
  2. DEXAMETHASONE TAB [Suspect]
     Indication: MULTIPLE MYELOMA
  3. SULFAMETHOXAZOLE AND TRIMETHOPRIM [Concomitant]
  4. ACYCLOVIR [Concomitant]
  5. DOMPERIDONE (DOMPERIDONE) [Concomitant]
  6. IMODIUM [Concomitant]
  7. CODEINE PHOSPHATE (CODEINE PHOSPHATE) [Concomitant]
  8. ERYTHROMYCIN [Concomitant]

REACTIONS (1)
  - MYELODYSPLASTIC SYNDROME [None]
